FAERS Safety Report 21408085 (Version 3)
Quarter: 2023Q4

REPORT INFORMATION
  Report Type: Spontaneous
  Country: CA (occurrence: CA)
  Receive Date: 20221004
  Receipt Date: 20231010
  Transmission Date: 20240110
  Serious: Yes (Hospitalization)
  Sender: FDA-Public Use
  Company Number: CA-PFIZER INC-202101368314

PATIENT
  Age: 73 Year
  Sex: Male

DRUGS (4)
  1. XALKORI [Suspect]
     Active Substance: CRIZOTINIB
     Indication: Non-small cell lung cancer
     Dosage: 250 MG, 2X/DAY
  2. XALKORI [Suspect]
     Active Substance: CRIZOTINIB
     Dosage: 250 MG, 2X/DAY
     Dates: start: 20220308
  3. XALKORI [Suspect]
     Active Substance: CRIZOTINIB
     Dosage: UNK (TAKEN OFF FOR 2 DOSES (MONDAY NIGHT AND TUESDAY MORNING DOSES) )
     Dates: start: 20220311
  4. XALKORI [Suspect]
     Active Substance: CRIZOTINIB
     Dosage: 250 MG, 1X/DAY
     Dates: start: 20220601

REACTIONS (4)
  - Inflammation [Unknown]
  - Off label use [Unknown]
  - Off label use [Unknown]
  - Diarrhoea [Unknown]

NARRATIVE: CASE EVENT DATE: 20220101
